FAERS Safety Report 16445081 (Version 2)
Quarter: 2019Q3

REPORT INFORMATION
  Report Type: Spontaneous
  Country: None (occurrence: CO)
  Receive Date: 20190618
  Receipt Date: 20190719
  Transmission Date: 20191004
  Serious: No
  Sender: FDA-Public Use
  Company Number: CO-POPULATION COUNCIL, INC.-2069315

PATIENT
  Sex: Female

DRUGS (1)
  1. JADELLE [Suspect]
     Active Substance: LEVONORGESTREL
     Indication: CONTRACEPTION
     Route: 065
     Dates: start: 2010, end: 2016

REACTIONS (5)
  - Hypomenorrhoea [Recovering/Resolving]
  - Food interaction [None]
  - Skin discolouration [None]
  - Device use issue [Unknown]
  - Menometrorrhagia [Recovering/Resolving]
